FAERS Safety Report 12763561 (Version 7)
Quarter: 2017Q2

REPORT INFORMATION
  Report Type: Spontaneous
  Country: US (occurrence: US)
  Receive Date: 20160920
  Receipt Date: 20170417
  Transmission Date: 20170830
  Serious: Yes (Hospitalization, Other)
  Sender: FDA-Public Use
  Company Number: US-009507513-1609USA008222

PATIENT
  Sex: Female
  Weight: 72.56 kg

DRUGS (4)
  1. SYNTHROID [Concomitant]
     Active Substance: LEVOTHYROXINE SODIUM
     Indication: THYROID DISORDER
     Dosage: 150 MG, QD
     Route: 048
     Dates: start: 2006
  2. NUVARING [Suspect]
     Active Substance: ETHINYL ESTRADIOL\ETONOGESTREL
     Indication: CONTRACEPTION
     Dosage: 1 DF, Q3W
     Route: 067
     Dates: start: 2006, end: 20140928
  3. NUVARING [Suspect]
     Active Substance: ETHINYL ESTRADIOL\ETONOGESTREL
     Indication: HEADACHE
  4. HYDROCODONE [Suspect]
     Active Substance: HYDROCODONE
     Indication: PRODUCT USED FOR UNKNOWN INDICATION
     Route: 065

REACTIONS (26)
  - Deep vein thrombosis [Recovered/Resolved with Sequelae]
  - Hyponatraemia [Unknown]
  - Hepatic steatosis [Unknown]
  - Anxiety [Not Recovered/Not Resolved]
  - Haemoptysis [Unknown]
  - Liver function test increased [Unknown]
  - Discomfort [Unknown]
  - Product use in unapproved indication [Unknown]
  - Urinary tract infection [Unknown]
  - Hypokalaemia [Unknown]
  - Pulmonary embolism [Recovered/Resolved]
  - Hypertension [Not Recovered/Not Resolved]
  - Hair growth abnormal [Unknown]
  - Insomnia [Unknown]
  - Hypothyroidism [Unknown]
  - Drug hypersensitivity [Unknown]
  - Constipation [Unknown]
  - Inappropriate schedule of drug administration [Unknown]
  - Haematuria [Recovered/Resolved]
  - Hypertonic bladder [Unknown]
  - Thyroiditis [Unknown]
  - Amenorrhoea [Unknown]
  - Hypercholesterolaemia [Recovered/Resolved]
  - Breast tenderness [Unknown]
  - Hyperglycaemia [Unknown]
  - Plantar fasciitis [Unknown]

NARRATIVE: CASE EVENT DATE: 200610
